FAERS Safety Report 22026906 (Version 2)
Quarter: 2024Q3

REPORT INFORMATION
  Report Type: Spontaneous
  Country: DE (occurrence: DE)
  Receive Date: 20230223
  Receipt Date: 20240709
  Transmission Date: 20241017
  Serious: Yes (Death, Life-Threatening, Hospitalization, Other)
  Sender: AUROBINDO
  Company Number: DE-STADA-269304

PATIENT
  Age: 30 Year
  Sex: Male

DRUGS (7)
  1. CEFTRIAXONE [Suspect]
     Active Substance: CEFTRIAXONE\CEFTRIAXONE SODIUM
     Indication: Whipple^s disease
     Dosage: UNK
     Route: 065
  2. MEROPENEM [Suspect]
     Active Substance: MEROPENEM
     Indication: Whipple^s disease
     Dosage: UNK
     Route: 065
  3. USTEKINUMAB [Suspect]
     Active Substance: USTEKINUMAB
     Indication: Crohn^s disease
     Dosage: UNK
     Route: 065
  4. AZATHIOPRINE [Suspect]
     Active Substance: AZATHIOPRINE
     Indication: Crohn^s disease
     Dosage: UNK
     Route: 065
  5. PREDNISOLONE [Suspect]
     Active Substance: PREDNISOLONE
     Indication: Crohn^s disease
     Dosage: 1 MILLIGRAM/KILOGRAM, ONCE A DAY
     Route: 065
  6. ACYCLOVIR [Concomitant]
     Active Substance: ACYCLOVIR
     Indication: Herpes simplex
     Dosage: UNK
     Route: 065
  7. RIBAVIRIN [Concomitant]
     Active Substance: RIBAVIRIN
     Indication: Antiviral treatment
     Dosage: UNK
     Route: 065

REACTIONS (13)
  - Septic shock [Fatal]
  - Cardiopulmonary failure [Fatal]
  - Multiple organ dysfunction syndrome [Fatal]
  - Oesophagitis [Unknown]
  - Whipple^s disease [Not Recovered/Not Resolved]
  - Herpes simplex [Unknown]
  - Systemic candida [Unknown]
  - Acute respiratory failure [Recovering/Resolving]
  - Condition aggravated [Not Recovered/Not Resolved]
  - Acute respiratory distress syndrome [Unknown]
  - Hepatitis E [Unknown]
  - Pneumonia [Recovering/Resolving]
  - Drug ineffective [Unknown]
